FAERS Safety Report 5543685-9 (Version None)
Quarter: 2007Q4

REPORT INFORMATION
  Report Type: 
  Country: None (occurrence: None)
  Receive Date: 20071206
  Receipt Date: 20070727
  Transmission Date: 20080405
  Serious: Yes (Other)
  Sender: FDA-Public Use
  Company Number: 002#1#2007-00341

PATIENT
  Sex: Male

DRUGS (4)
  1. NEUPRO [Suspect]
     Indication: DRUG USE FOR UNKNOWN INDICATION
     Dosage: 4;4;6;4MG/24H, 1 IN 1, TRANSDERMAL,6 MG/24H, 1 IN 1, TRANSDERMAL
     Route: 062
     Dates: start: 20070101, end: 20070101
  2. NEUPRO [Suspect]
     Indication: DRUG USE FOR UNKNOWN INDICATION
     Dosage: 4;4;6;4MG/24H, 1 IN 1, TRANSDERMAL,6 MG/24H, 1 IN 1, TRANSDERMAL
     Route: 062
     Dates: start: 20070101, end: 20070101
  3. NEUPRO [Suspect]
     Indication: DRUG USE FOR UNKNOWN INDICATION
     Dosage: 4;4;6;4MG/24H, 1 IN 1, TRANSDERMAL,6 MG/24H, 1 IN 1, TRANSDERMAL
     Route: 062
     Dates: start: 20070101, end: 20070101
  4. NEUPRO [Suspect]
     Indication: DRUG USE FOR UNKNOWN INDICATION
     Dosage: 4;4;6;4MG/24H, 1 IN 1, TRANSDERMAL,6 MG/24H, 1 IN 1, TRANSDERMAL
     Route: 062
     Dates: start: 20070101, end: 20070101

REACTIONS (2)
  - LOSS OF CONSCIOUSNESS [None]
  - PHARMACEUTICAL PRODUCT COMPLAINT [None]
